FAERS Safety Report 8713159 (Version 2)
Quarter: 2012Q4

REPORT INFORMATION
  Report Type: 
  Country: BR (occurrence: BR)
  Receive Date: 20120808
  Receipt Date: 20120924
  Transmission Date: 20130627
  Serious: Yes (Hospitalization, Other)
  Sender: FDA-Public Use
  Company Number: BR-PFIZER INC-2012190458

PATIENT
  Age: 52 Year
  Sex: Female
  Weight: 58 kg

DRUGS (5)
  1. LYRICA [Suspect]
     Indication: PAIN
     Dosage: 1 capsule 12 in 12 hours 2x/day
     Route: 048
     Dates: start: 201204
  2. VALIUM [Concomitant]
     Dosage: 10 mg, 1x/day
     Route: 048
  3. VALIUM [Concomitant]
     Dosage: 5 mg, 1x/day
     Route: 048
  4. TYLEX [Concomitant]
     Indication: PAIN
     Route: 048
  5. CYMBALTA [Concomitant]
     Dosage: 60 mg, 1x/day
     Route: 048

REACTIONS (2)
  - Spinal column injury [Unknown]
  - Arthrodesis [Recovering/Resolving]
